FAERS Safety Report 9462654 (Version 2)
Quarter: 2013Q4

REPORT INFORMATION
  Report Type: Spontaneous
  Country: US (occurrence: US)
  Receive Date: 20130816
  Receipt Date: 20131009
  Transmission Date: 20140711
  Serious: Yes (Other)
  Sender: FDA-Public Use
  Company Number: US-ELI_LILLY_AND_COMPANY-US201308004025

PATIENT
  Age: 55 Year
  Sex: Female
  Weight: 80.73 kg

DRUGS (1)
  1. HUMALOG LISPRO [Suspect]

REACTIONS (10)
  - Blood glucose increased [Unknown]
  - Blood ketone body [Unknown]
  - Dehydration [Unknown]
  - Malaise [Unknown]
  - Headache [Unknown]
  - Back pain [Unknown]
  - Nausea [Unknown]
  - Vomiting [Unknown]
  - Fatigue [Unknown]
  - Blood glucose decreased [Unknown]
